FAERS Safety Report 11231037 (Version 1)
Quarter: 2015Q3

REPORT INFORMATION
  Report Type: Report from Study
  Country: US (occurrence: US)
  Receive Date: 20150701
  Receipt Date: 20150701
  Transmission Date: 20151125
  Serious: Yes (Other)
  Sender: FDA-Public Use
  Company Number: US-JNJFOC-20150617002

PATIENT
  Age: 57 Year
  Sex: Male

DRUGS (1)
  1. INVOKAMET [Suspect]
     Active Substance: CANAGLIFLOZIN\METFORMIN HYDROCHLORIDE
     Indication: DIABETES MELLITUS
     Route: 048
     Dates: start: 2015, end: 201506

REACTIONS (2)
  - Renal pain [Unknown]
  - Haemorrhage [Unknown]

NARRATIVE: CASE EVENT DATE: 201506
